FAERS Safety Report 8608364-X (Version None)
Quarter: 2012Q3

REPORT INFORMATION
  Report Type: 
  Country: None (occurrence: None)
  Receive Date: 20120808
  Receipt Date: 20120723
  Transmission Date: 20120928
  Serious: Yes (Other)
  Sender: FDA-Public Use
  Company Number: DSA_57751_2012

PATIENT
  Age: 59 Year
  Sex: Female

DRUGS (4)
  1. AMLODIPINE [Suspect]
     Indication: PRODUCT USED FOR UNKNOWN INDICATION
     Dosage: DF
  2. INDAPAMIDE [Concomitant]
  3. PRAZOSIN [Concomitant]
  4. ENALAPRIL MALEATE [Suspect]
     Indication: ESSENTIAL HYPERTENSION
     Dosage: 10 MG QD ORAL
     Route: 048

REACTIONS (1)
  - MUSCULOSKELETAL PAIN [None]
